FAERS Safety Report 21592725 (Version 1)
Quarter: 2022Q4

REPORT INFORMATION
  Report Type: Report from Study
  Country: US (occurrence: US)
  Receive Date: 20221114
  Receipt Date: 20221114
  Transmission Date: 20230113
  Serious: No
  Sender: FDA-Public Use
  Company Number: US-ABBVIE-4155899

PATIENT
  Sex: Female

DRUGS (13)
  1. HUMIRA [Suspect]
     Active Substance: ADALIMUMAB
     Indication: Rheumatoid arthritis
     Dosage: STRENGTH: 40 MG
     Route: 058
     Dates: start: 20220816
  2. PREDNISONE [Concomitant]
     Active Substance: PREDNISONE
     Indication: Product used for unknown indication
  3. SPIRONOLACTO [Concomitant]
     Indication: Product used for unknown indication
  4. 45 mg Mirtazapine [Concomitant]
     Indication: Product used for unknown indication
  5. OMEPRAZOLE [Concomitant]
     Active Substance: OMEPRAZOLE
     Indication: Product used for unknown indication
  6. 15 mg Meloxicam [Concomitant]
     Indication: Product used for unknown indication
  7. ASPIRIN [Concomitant]
     Active Substance: ASPIRIN
     Indication: Product used for unknown indication
  8. 500 mg Vitamin C [Concomitant]
     Indication: Product used for unknown indication
  9. 25 mg Carvedilol [Concomitant]
     Indication: Product used for unknown indication
  10. 70 mg Alendronate sodium [Concomitant]
     Indication: Product used for unknown indication
  11. AMLODIPINE VITABALANS [Concomitant]
     Indication: Product used for unknown indication
  12. 40 mg Furosemide [Concomitant]
     Indication: Product used for unknown indication
  13. 200 mg Hydroxychloroquine [Concomitant]
     Indication: Product used for unknown indication

REACTIONS (2)
  - Arthralgia [Not Recovered/Not Resolved]
  - Device delivery system issue [Unknown]
